FAERS Safety Report 4717754-7 (Version None)
Quarter: 2005Q3

REPORT INFORMATION
  Report Type: 
  Country: None (occurrence: None)
  Receive Date: 20050715
  Receipt Date: 20050128
  Transmission Date: 20060218
  Serious: Yes (Death, Life-Threatening)
  Sender: FDA-Public Use
  Company Number: M04-INT-070

PATIENT
  Age: 83 Year
  Sex: Male
  Weight: 71 kg

DRUGS (5)
  1. INTEGRILIN [Suspect]
     Indication: ANGINA UNSTABLE
     Dosage: SEE IMAGE
     Dates: start: 20040325, end: 20040325
  2. INTEGRILIN [Suspect]
     Indication: ANGINA UNSTABLE
     Dosage: SEE IMAGE
     Dates: start: 20040325, end: 20040326
  3. HEPARIN [Concomitant]
  4. PLAVIX [Concomitant]
  5. ASPIRIN [Concomitant]

REACTIONS (6)
  - COAGULATION TIME PROLONGED [None]
  - CONVULSION [None]
  - HAEMATEMESIS [None]
  - HAEMATURIA [None]
  - HAEMORRHAGE INTRACRANIAL [None]
  - NEUROLOGICAL SYMPTOM [None]
